FAERS Safety Report 9099812 (Version 2)
Quarter: 2013Q1

REPORT INFORMATION
  Report Type: Spontaneous
  Country: US (occurrence: US)
  Receive Date: 20130214
  Receipt Date: 20130308
  Transmission Date: 20140127
  Serious: Yes (Life-Threatening, Hospitalization)
  Sender: FDA-Public Use
  Company Number: US-ROCHE-1190610

PATIENT
  Age: 66 Year
  Sex: Male
  Weight: 69 kg

DRUGS (20)
  1. RITUXAN [Suspect]
     Indication: DIFFUSE LARGE B-CELL LYMPHOMA
     Route: 042
     Dates: start: 20121210, end: 20130115
  2. CYCLOPHOSPHAMIDE [Suspect]
     Indication: DIFFUSE LARGE B-CELL LYMPHOMA
     Route: 042
     Dates: start: 20121210, end: 20130115
  3. DOXORUBICIN [Suspect]
     Indication: DIFFUSE LARGE B-CELL LYMPHOMA
     Route: 042
     Dates: start: 20121210, end: 20130115
  4. VINCRISTINE [Suspect]
     Indication: DIFFUSE LARGE B-CELL LYMPHOMA
     Route: 042
     Dates: start: 20121210, end: 20130115
  5. PREDNISONE [Suspect]
     Indication: DIFFUSE LARGE B-CELL LYMPHOMA
     Route: 042
     Dates: start: 20121210, end: 20130115
  6. ACETAMINOPHEN [Concomitant]
  7. LIPITOR [Concomitant]
  8. VITAMIN D3 [Concomitant]
  9. FINASTERIDE [Concomitant]
  10. FUROSIDE [Concomitant]
  11. LORAZEPAM [Concomitant]
  12. GLYBURIDE [Concomitant]
  13. LOSARTAN [Concomitant]
  14. ASACOL [Concomitant]
  15. METROPOLOL COMP [Concomitant]
  16. NIASPAN ER [Concomitant]
  17. OMEPRAZOLE [Concomitant]
  18. POLYETHYLENE GLYCOL [Concomitant]
  19. SPIRONOLACTONE [Concomitant]
  20. TERAZOSIN [Concomitant]

REACTIONS (1)
  - Pulmonary toxicity [Recovering/Resolving]
